FAERS Safety Report 23432492 (Version 1)
Quarter: 2024Q1

REPORT INFORMATION
  Report Type: Spontaneous
  Country: SE (occurrence: SE)
  Receive Date: 20240123
  Receipt Date: 20240123
  Transmission Date: 20240410
  Serious: Yes (Other)
  Sender: FDA-Public Use
  Company Number: SE-009507513-2401SWE011078

PATIENT
  Sex: Female

DRUGS (1)
  1. PEMBROLIZUMAB [Suspect]
     Active Substance: PEMBROLIZUMAB
     Indication: Lung neoplasm malignant
     Dosage: UNK
     Dates: start: 2021, end: 202305

REACTIONS (3)
  - Autoimmune nephritis [Unknown]
  - Hydronephrosis [Unknown]
  - Retroperitoneal fibrosis [Unknown]

NARRATIVE: CASE EVENT DATE: 20230901
